FAERS Safety Report 8492167 (Version 3)
Quarter: 2013Q1

REPORT INFORMATION
  Report Type: Report from Study
  Country: DE (occurrence: DE)
  Receive Date: 20120403
  Receipt Date: 20130125
  Transmission Date: 20140127
  Serious: Yes (Disabling, Other)
  Sender: FDA-Public Use
  Company Number: PHHY2012DE027974

PATIENT
  Age: 67 Year
  Sex: Female
  Weight: 85 kg

DRUGS (8)
  1. ZOLEDRONATE [Suspect]
     Indication: BONE DISORDER
     Dosage: 3.5 MG, EVERY 4 WEEKS
     Dates: start: 20110127, end: 20120330
  2. TAXOL [Concomitant]
     Dosage: UNK UKN, UNK
     Dates: start: 20101025
  3. AVASTIN [Concomitant]
     Indication: METASTATIC NEOPLASM
     Dosage: 1275 MG, EVERY 3 WEEKS
     Route: 042
     Dates: start: 20101025
  4. CO-DIOVANE [Concomitant]
     Dosage: 2X 1/2
  5. CALCIUM [Concomitant]
     Dosage: 600 MG, DAILY
     Route: 048
  6. VITAMIN D [Concomitant]
     Dosage: 400 IE, DAILY
     Route: 048
  7. XELODA [Concomitant]
     Indication: METASTATIC NEOPLASM
     Dosage: 4000 MG, UNK
     Dates: start: 20110530
  8. NAVELBINE [Concomitant]
     Dosage: UNK UKN, UNK

REACTIONS (7)
  - Osteonecrosis of jaw [Not Recovered/Not Resolved]
  - Loose tooth [Not Recovered/Not Resolved]
  - Bone lesion [Not Recovered/Not Resolved]
  - Erythema [Not Recovered/Not Resolved]
  - Skin swelling [Not Recovered/Not Resolved]
  - Bone pain [Not Recovered/Not Resolved]
  - Aphagia [Not Recovered/Not Resolved]
